FAERS Safety Report 5809021-5 (Version None)
Quarter: 2008Q3

REPORT INFORMATION
  Report Type: 
  Country: None (occurrence: None)
  Receive Date: 20080710
  Receipt Date: 20080710
  Transmission Date: 20090109
  Serious: Yes (Other)
  Sender: FDA-Public Use
  Company Number: None

PATIENT
  Age: 15 Year
  Sex: Male
  Weight: 27.3519 kg

DRUGS (1)
  1. ETOPOSIDE [Suspect]
     Indication: ACUTE MYELOID LEUKAEMIA
     Dosage: 172 MG Q24H IV
     Route: 042
     Dates: start: 20080328, end: 20080402

REACTIONS (6)
  - COUGH [None]
  - ERYTHEMA [None]
  - FEELING ABNORMAL [None]
  - PRURITUS [None]
  - RASH [None]
  - RESPIRATORY RATE INCREASED [None]
